FAERS Safety Report 7589034-6 (Version None)
Quarter: 2011Q3

REPORT INFORMATION
  Report Type: 
  Country: None (occurrence: None)
  Receive Date: 20110705
  Receipt Date: 20110623
  Transmission Date: 20111222
  Serious: Yes (Other)
  Sender: FDA-Public Use
  Company Number: US-AMGEN-USASP2011032176

PATIENT
  Age: 39 Year
  Sex: Male

DRUGS (2)
  1. ENBREL [Suspect]
     Indication: RHEUMATOID ARTHRITIS
     Dosage: 50 MG, QWK
     Dates: start: 20110313
  2. ENBREL [Suspect]
     Indication: SYSTEMIC LUPUS ERYTHEMATOSUS

REACTIONS (8)
  - HYPOAESTHESIA [None]
  - VISUAL ACUITY REDUCED [None]
  - CONDITION AGGRAVATED [None]
  - HEADACHE [None]
  - ANXIETY [None]
  - DIZZINESS [None]
  - AMNESIA [None]
  - JOINT SWELLING [None]
